FAERS Safety Report 5875517-3 (Version None)
Quarter: 2008Q3

REPORT INFORMATION
  Report Type: 
  Country: None (occurrence: None)
  Receive Date: 20080905
  Receipt Date: 20080822
  Transmission Date: 20090109
  Serious: Yes (Hospitalization)
  Sender: FDA-Public Use
  Company Number: AZAUS200800225

PATIENT
  Age: 86 Year
  Sex: Male
  Weight: 66.4 kg

DRUGS (12)
  1. VIDAZA [Suspect]
     Indication: MYELODYSPLASTIC SYNDROME
     Dosage: 50 MG/M2, DAILY X 5 DAYS, SUBCUTANEOUS
     Route: 058
     Dates: start: 20080714, end: 20080716
  2. VIDAZA [Suspect]
  3. LEVOTHYROXINE SODIUM [Concomitant]
  4. LORAZEPAM [Concomitant]
  5. MODAFINIL (MODAFINIL) [Concomitant]
  6. ACETAMINOPHEN (PARCETAMOL) [Concomitant]
  7. ONDANSETRON HCL [Concomitant]
  8. DIPHENHYDRAMINE HCL [Concomitant]
  9. POTASSIUM (POTASSIUM) [Concomitant]
  10. DEFERASIROX (DEFERASIROX) [Concomitant]
  11. TRAMADOL HCL [Concomitant]
  12. FILGRASTIM (FILGRASTIM) [Concomitant]

REACTIONS (7)
  - DELIRIUM [None]
  - DIVERTICULITIS [None]
  - INTESTINAL PERFORATION [None]
  - MENTAL STATUS CHANGES [None]
  - MOOD ALTERED [None]
  - PAIN [None]
  - SEPSIS [None]
